FAERS Safety Report 6115286-5 (Version None)
Quarter: 2009Q1

REPORT INFORMATION
  Report Type: 
  Country: None (occurrence: None)
  Receive Date: 20090313
  Receipt Date: 20090305
  Transmission Date: 20090719
  Serious: Yes (Other)
  Sender: FDA-Public Use
  Company Number: CH-WYE-G02908309

PATIENT
  Sex: Female

DRUGS (2)
  1. EFFEXOR [Suspect]
     Indication: DEPRESSION
  2. LORAZEPAM [Concomitant]
     Dosage: LOWEST DOSE, FREQUENCY UNKNOWN

REACTIONS (2)
  - MULTIPLE SCLEROSIS [None]
  - VISION BLURRED [None]
